FAERS Safety Report 19855513 (Version 1)
Quarter: 2021Q3

REPORT INFORMATION
  Report Type: Spontaneous
  Country: US (occurrence: US)
  Receive Date: 20210920
  Receipt Date: 20210920
  Transmission Date: 20211014
  Serious: Yes (Hospitalization)
  Sender: FDA-Public Use
  Company Number: None

PATIENT
  Age: 62 Year
  Sex: Female
  Weight: 72.45 kg

DRUGS (1)
  1. REGEN?COV [Suspect]
     Active Substance: CASIRIVIMAB\IMDEVIMAB
     Indication: COVID-19
     Dosage: ?          OTHER FREQUENCY:ONCE;?
     Route: 041
     Dates: start: 20210826, end: 20210826

REACTIONS (14)
  - Pyrexia [None]
  - Chills [None]
  - Pain [None]
  - Anosmia [None]
  - Acute respiratory distress syndrome [None]
  - Acute respiratory failure [None]
  - Ageusia [None]
  - Pneumonia [None]
  - COVID-19 [None]
  - Nausea [None]
  - Vomiting [None]
  - Staphylococcal sepsis [None]
  - Dyspnoea [None]
  - Diarrhoea [None]

NARRATIVE: CASE EVENT DATE: 20210827
